FAERS Safety Report 12739719 (Version 1)
Quarter: 2016Q3

REPORT INFORMATION
  Report Type: Spontaneous
  Country: GB (occurrence: GB)
  Receive Date: 20160913
  Receipt Date: 20160913
  Transmission Date: 20161109
  Serious: Yes (Other)
  Sender: FDA-Public Use
  Company Number: GB-MYLANLABS-2016M1037676

PATIENT

DRUGS (2)
  1. LEVOTHYROXINE. [Concomitant]
     Active Substance: LEVOTHYROXINE
     Indication: THYROIDECTOMY
     Dosage: 75 MG, QD
     Dates: start: 1981
  2. SIMVASTATIN. [Suspect]
     Active Substance: SIMVASTATIN
     Indication: POOR PERIPHERAL CIRCULATION
     Dosage: 20 MG, QD (IN EVENING)
     Dates: start: 2006, end: 201607

REACTIONS (3)
  - Headache [Recovering/Resolving]
  - Vision blurred [Recovering/Resolving]
  - Glucose tolerance impaired [Recovering/Resolving]

NARRATIVE: CASE EVENT DATE: 2016
